FAERS Safety Report 20846318 (Version 3)
Quarter: 2022Q3

REPORT INFORMATION
  Report Type: Other
  Country: SK (occurrence: SK)
  Receive Date: 20220518
  Receipt Date: 20220714
  Transmission Date: 20221026
  Serious: Yes (Hospitalization)
  Sender: FDA-Public Use
  Company Number: SK-TOLMAR, INC.-22SK033871

PATIENT
  Age: 81 Year
  Sex: Male

DRUGS (8)
  1. ELIGARD [Suspect]
     Active Substance: LEUPROLIDE ACETATE
     Indication: Prostate cancer
     Dosage: 5 MILLIGRAM, Q 3 MONTH
     Route: 058
     Dates: start: 20181218
  2. ENZALUTAMIDE [Suspect]
     Active Substance: ENZALUTAMIDE
     Indication: Prostate cancer
     Dosage: UNK, QD
     Route: 048
     Dates: start: 20181218, end: 20220319
  3. ASPIRIN [Suspect]
     Active Substance: ASPIRIN
     Indication: COVID-19
     Dosage: 100 MILLIGRAM, QD
     Route: 048
     Dates: start: 202203, end: 20220319
  4. CANDESARTAN [Concomitant]
     Active Substance: CANDESARTAN
     Indication: Hypertension
     Dosage: UNK
     Dates: start: 201503
  5. ATORVASTATIN CALCIUM [Concomitant]
     Active Substance: ATORVASTATIN CALCIUM
     Indication: Hypercholesterolaemia
     Dosage: UNK
     Dates: start: 2010
  6. MEPHENOXALONE [Concomitant]
     Active Substance: MEPHENOXALONE
     Indication: Radiculopathy
     Dosage: UNK
     Dates: start: 20180626
  7. AMLODIPINI BESILAS [Concomitant]
     Indication: Hypertension
     Dosage: UNK
     Dates: start: 201503
  8. METAMIZOLUM NATRICUM [Concomitant]
     Indication: Radiculopathy
     Dosage: UNK
     Dates: start: 201908

REACTIONS (1)
  - Gastric haemorrhage [Recovered/Resolved]

NARRATIVE: CASE EVENT DATE: 20220319
